FAERS Safety Report 17003911 (Version 1)
Quarter: 2019Q4

REPORT INFORMATION
  Report Type: Spontaneous
  Country: US (occurrence: US)
  Receive Date: 20191107
  Receipt Date: 20191107
  Transmission Date: 20200122
  Serious: No
  Sender: FDA-Public Use
  Company Number: US-TEVA-2019-US-1132914

PATIENT
  Sex: Female

DRUGS (1)
  1. DIAZEPAM-TEVA [Suspect]
     Active Substance: DIAZEPAM
     Indication: ANXIETY
     Route: 065
     Dates: start: 2018

REACTIONS (5)
  - Dry mouth [Unknown]
  - Anxiety [Unknown]
  - Nervousness [Unknown]
  - Product substitution issue [Unknown]
  - Rash [Unknown]

NARRATIVE: CASE EVENT DATE: 2018
